FAERS Safety Report 21767213 (Version 1)
Quarter: 2022Q4

REPORT INFORMATION
  Report Type: Other
  Country: US (occurrence: US)
  Receive Date: 20221222
  Receipt Date: 20221222
  Transmission Date: 20230113
  Serious: Yes (Hospitalization, Other)
  Sender: FDA-Public Use
  Company Number: US-Prasco Laboratories-PRAS20220388

PATIENT
  Sex: Male

DRUGS (1)
  1. SULFAMETHOXAZOLE AND TRIMETHOPRIM [Suspect]
     Active Substance: SULFAMETHOXAZOLE\TRIMETHOPRIM
     Indication: Perirectal abscess
     Dosage: UNKNOWN
     Route: 065

REACTIONS (16)
  - Haemophagocytic lymphohistiocytosis [Recovered/Resolved]
  - Multiple organ dysfunction syndrome [Recovered/Resolved]
  - Acute kidney injury [Recovered/Resolved]
  - Hyperbilirubinaemia [Recovering/Resolving]
  - Pancytopenia [Recovered/Resolved]
  - Schistocytosis [Recovered/Resolved]
  - Hepatosplenomegaly [Recovered/Resolved]
  - Coagulopathy [Recovered/Resolved]
  - Hypertriglyceridaemia [Recovered/Resolved]
  - Rouleaux formation [Recovered/Resolved]
  - Pyrexia [Recovered/Resolved]
  - Chills [Recovered/Resolved]
  - Night sweats [Recovered/Resolved]
  - Rash [Recovered/Resolved]
  - Pallor [Recovered/Resolved]
  - Rash morbilliform [Recovered/Resolved]
